FAERS Safety Report 24207760 (Version 4)
Quarter: 2025Q4

REPORT INFORMATION
  Report Type: Report from Study
  Country: JP (occurrence: JP)
  Receive Date: 20240814
  Receipt Date: 20251013
  Transmission Date: 20260118
  Serious: Yes (Hospitalization, Other)
  Sender: AMGEN
  Company Number: JP-KISSEI-TV20240596_P_1

PATIENT
  Age: 80 Year
  Sex: Male
  Weight: 65.4 kg

DRUGS (36)
  1. AVACOPAN [Suspect]
     Active Substance: AVACOPAN
     Indication: Microscopic polyangiitis
     Dosage: 30,MG,BID
     Route: 048
     Dates: start: 20231208, end: 20231211
  2. AVACOPAN [Suspect]
     Active Substance: AVACOPAN
     Dosage: 30,MG,BID
     Route: 048
     Dates: start: 20231215
  3. PREDNISOLONE [Suspect]
     Active Substance: PREDNISOLONE
     Indication: Microscopic polyangiitis
     Dosage: 40,MG,QD
     Route: 048
  4. PREDNISOLONE [Suspect]
     Active Substance: PREDNISOLONE
     Dosage: 35,MG,QD
     Route: 048
     Dates: end: 20231221
  5. PREDNISOLONE [Suspect]
     Active Substance: PREDNISOLONE
     Dosage: 30,MG,QD
     Route: 048
     Dates: start: 20231222, end: 20231228
  6. PREDNISOLONE [Suspect]
     Active Substance: PREDNISOLONE
     Dosage: 25,MG,QD
     Route: 048
     Dates: start: 20231229, end: 20240104
  7. PREDNISOLONE [Suspect]
     Active Substance: PREDNISOLONE
     Dosage: 20,MG,QD
     Route: 048
     Dates: start: 20240105, end: 20240111
  8. PREDNISOLONE [Suspect]
     Active Substance: PREDNISOLONE
     Dosage: 15,MG,QD
     Route: 048
     Dates: start: 20240112, end: 20240118
  9. PREDNISOLONE [Suspect]
     Active Substance: PREDNISOLONE
     Dosage: 10,MG,QD
     Route: 048
     Dates: start: 20240119, end: 20240218
  10. PREDNISOLONE [Suspect]
     Active Substance: PREDNISOLONE
     Dosage: 7.5,MG,QD
     Route: 048
     Dates: start: 20240219, end: 20240402
  11. PREDNISOLONE [Suspect]
     Active Substance: PREDNISOLONE
     Dosage: 5,MG,QD
     Route: 048
     Dates: start: 20240403, end: 20240514
  12. PREDNISOLONE [Suspect]
     Active Substance: PREDNISOLONE
     Dosage: 2.5,MG,QD
     Route: 048
     Dates: start: 20240515, end: 20241217
  13. SULFAMETHOXAZOLE\TRIMETHOPRIM [Suspect]
     Active Substance: SULFAMETHOXAZOLE\TRIMETHOPRIM
     Indication: Antifungal prophylaxis
     Dosage: 240,MG,QD
     Route: 048
  14. DARBEPOETIN ALFA [Concomitant]
     Active Substance: DARBEPOETIN ALFA
     Indication: Product used for unknown indication
     Dosage: UNK,UNK,UNK
     Route: 040
     Dates: end: 20240109
  15. MIRCERA [Concomitant]
     Active Substance: METHOXY POLYETHYLENE GLYCOL-EPOETIN BETA
     Indication: Anaemia
     Dosage: UNK,UNK,UNK
     Route: 040
     Dates: start: 20240403
  16. RITUXIMAB [Concomitant]
     Active Substance: RITUXIMAB
     Indication: Microscopic polyangiitis
     Dosage: 560 MG
     Route: 040
     Dates: start: 20240116, end: 20240116
  17. RITUXIMAB [Concomitant]
     Active Substance: RITUXIMAB
     Dosage: 560 MG
     Route: 040
     Dates: start: 20240925, end: 20240925
  18. FUROSEMIDE [Concomitant]
     Active Substance: FUROSEMIDE
     Dosage: UNK,UNK,UNK
     Route: 048
  19. DAYVIGO [Concomitant]
     Active Substance: LEMBOREXANT
     Dosage: UNK,UNK,UNK
     Route: 048
  20. ASPIRIN [Concomitant]
     Active Substance: ASPIRIN
     Indication: Cerebral infarction
     Dosage: UNK,UNK,UNK
     Route: 048
  21. ASPIRIN [Concomitant]
     Active Substance: ASPIRIN
     Dosage: UNK,UNK,UNK
     Route: 048
     Dates: start: 20231217
  22. BISOPROLOL [Concomitant]
     Active Substance: BISOPROLOL
     Dosage: TAPE
     Route: 062
  23. TENELIGLIPTIN [Concomitant]
     Active Substance: TENELIGLIPTIN
     Dosage: UNK,UNK,UNK
     Route: 048
  24. AMLODIPINE BESYLATE [Concomitant]
     Active Substance: AMLODIPINE BESYLATE
     Dosage: UNK,UNK,UNK
     Route: 048
     Dates: end: 20231210
  25. CARBOCYSTEINE [Concomitant]
     Active Substance: CARBOCYSTEINE
     Dosage: UNK,UNK,UNK
     Route: 048
     Dates: end: 20231210
  26. CARBOCYSTEINE [Concomitant]
     Active Substance: CARBOCYSTEINE
     Dosage: UNK,UNK,UNK
     Route: 048
     Dates: start: 20231221, end: 20240130
  27. DOXAZOSIN [Concomitant]
     Active Substance: DOXAZOSIN MESYLATE
     Dosage: UNK
     Route: 048
     Dates: end: 20231210
  28. NIFEDIPINE [Concomitant]
     Active Substance: NIFEDIPINE
     Indication: Hypertension
     Dosage: UNK,UNK,UNK
     Route: 048
     Dates: start: 20231220
  29. VONOPRAZAN FUMARATE [Concomitant]
     Active Substance: VONOPRAZAN FUMARATE
     Indication: Prophylaxis
     Dosage: UNK,UNK,UNK
     Route: 048
     Dates: start: 20231215
  30. PITAVASTATIN CALCIUM [Concomitant]
     Active Substance: PITAVASTATIN CALCIUM
     Indication: Dyslipidaemia
     Dosage: UNK,UNK,UNK
     Route: 048
     Dates: start: 20231229
  31. FEBUXOSTAT [Concomitant]
     Active Substance: FEBUXOSTAT
     Dosage: UNK,UNK,UNK
     Route: 048
     Dates: start: 20240131
  32. NOVORAPID [Concomitant]
     Active Substance: INSULIN ASPART
     Dosage: UNK,UNK,UNK
     Route: 040
  33. LOKELMA [Concomitant]
     Active Substance: SODIUM ZIRCONIUM CYCLOSILICATE
     Indication: Hyperkalaemia
     Dosage: UNK,UNK,UNK
     Route: 048
     Dates: start: 20240131, end: 20240402
  34. AZILSARTAN KAMEDOXOMIL [Concomitant]
     Active Substance: AZILSARTAN KAMEDOXOMIL
     Dosage: UNK
     Route: 048
     Dates: start: 20241016
  35. VOGLIBOSE [Concomitant]
     Active Substance: VOGLIBOSE
     Dosage: UNK
     Route: 048
     Dates: start: 20240821
  36. CALCIUM POLYSTYRENE SULFONATE [Concomitant]
     Active Substance: CALCIUM POLYSTYRENE SULFONATE
     Dosage: UNK
     Route: 048
     Dates: start: 20241113

REACTIONS (8)
  - Epilepsy [Recovering/Resolving]
  - Cerebral infarction [Unknown]
  - Seizure [Recovering/Resolving]
  - Hyperkalaemia [Recovered/Resolved]
  - COVID-19 [Recovered/Resolved]
  - Dyskinesia [Recovered/Resolved]
  - Tremor [Recovered/Resolved]
  - Dyskinesia [Recovered/Resolved]

NARRATIVE: CASE EVENT DATE: 20240126
